FAERS Safety Report 9428225 (Version 1)
Quarter: 2013Q3

REPORT INFORMATION
  Report Type: Spontaneous
  Country: US (occurrence: US)
  Receive Date: 20130730
  Receipt Date: 20130730
  Transmission Date: 20140515
  Serious: No
  Sender: FDA-Public Use
  Company Number: US-GLAXOSMITHKLINE-A0990476A

PATIENT
  Sex: Female

DRUGS (5)
  1. OMEPRAZOLE [Suspect]
     Indication: ULCER HAEMORRHAGE
     Route: 065
  2. RANITIDINE HYDROCHLORIDE [Suspect]
     Indication: ULCER HAEMORRHAGE
     Route: 065
  3. LOVAZA [Concomitant]
  4. NEXIUM [Concomitant]
  5. ZANTAC [Concomitant]

REACTIONS (1)
  - Adverse event [Unknown]
